FAERS Safety Report 7907500-8 (Version None)
Quarter: 2011Q4

REPORT INFORMATION
  Report Type: 
  Country: None (occurrence: None)
  Receive Date: 20111109
  Receipt Date: 20111109
  Transmission Date: 20120403
  Serious: Yes (Hospitalization)
  Sender: FDA-Public Use
  Company Number: None

PATIENT
  Sex: Female
  Weight: 74.11 kg

DRUGS (9)
  1. ZOLPIDEN [Concomitant]
  2. PEMETREXED [Suspect]
     Dosage: 895 MG
  3. COLACE [Concomitant]
  4. DEXAMETHASONE [Concomitant]
  5. METFORMIN [Concomitant]
  6. FOLIC ACID [Concomitant]
  7. VITAMIN B-12 [Concomitant]
  8. CISPLATIN [Suspect]
     Dosage: 89.5 MG
  9. ZOFRAN [Concomitant]

REACTIONS (4)
  - BLOOD CREATININE INCREASED [None]
  - URINARY TRACT INFECTION [None]
  - DEHYDRATION [None]
  - PYREXIA [None]
